FAERS Safety Report 12517241 (Version 1)
Quarter: 2016Q2

REPORT INFORMATION
  Report Type: Spontaneous
  Country: US (occurrence: US)
  Receive Date: 20160630
  Receipt Date: 20160630
  Transmission Date: 20160815
  Serious: Yes (Other)
  Sender: FDA-Public Use
  Company Number: US-PFIZER INC-2016318608

PATIENT
  Sex: Male

DRUGS (20)
  1. HYDROCORTISONE. [Concomitant]
     Active Substance: HYDROCORTISONE
     Dosage: 0.5 MG PILLS 4 TIMES DAILY
     Route: 048
  2. VIIBRYD [Concomitant]
     Active Substance: VILAZODONE HYDROCHLORIDE
     Indication: DEPRESSION
     Dosage: 40 MG PILL ONCE DAILY
     Route: 048
     Dates: start: 201601
  3. AMBIEN [Concomitant]
     Active Substance: ZOLPIDEM TARTRATE
     Indication: INITIAL INSOMNIA
     Dosage: 10 MG PILL ONE TIME AT NIGHT
     Route: 048
     Dates: start: 201410
  4. SEROQUEL [Concomitant]
     Active Substance: QUETIAPINE FUMARATE
     Indication: POST-TRAUMATIC STRESS DISORDER
  5. PROVIGIL [Concomitant]
     Active Substance: MODAFINIL
     Indication: SLEEP APNOEA SYNDROME
     Dosage: 200 MG ONE TIME A DAY
     Route: 048
     Dates: start: 2007, end: 20160617
  6. VITAMIN D [Concomitant]
     Active Substance: CHOLECALCIFEROL
     Dosage: 2000 UNITS ONCE DAILY
     Dates: start: 201206
  7. TOPROL XL [Concomitant]
     Active Substance: METOPROLOL SUCCINATE
     Indication: BLOOD PRESSURE ABNORMAL
     Dosage: 100 MG PILL 2 TIMES
     Route: 048
     Dates: start: 2014
  8. FENOFIBRIC ACID. [Concomitant]
     Active Substance: FENOFIBRIC ACID
     Indication: BLOOD CHOLESTEROL INCREASED
     Dosage: 135 MG CAPSULE ONCE A DAY
     Route: 048
     Dates: start: 2011
  9. LYRICA [Suspect]
     Active Substance: PREGABALIN
     Indication: PAIN
     Dosage: 150 MG CAPSULE THREE TIMES DAILY
     Route: 048
     Dates: start: 2007
  10. LOPRESSOR [Concomitant]
     Active Substance: METOPROLOL TARTRATE
     Indication: BLOOD PRESSURE ABNORMAL
     Dosage: 50 MG TABLET TWICE
     Route: 048
     Dates: start: 2014
  11. KLONOPIN [Concomitant]
     Active Substance: CLONAZEPAM
     Indication: ANXIETY
     Dosage: 0.5 MG PILL 4 TIMES A DAY
     Route: 048
     Dates: start: 2007
  12. LYRICA [Suspect]
     Active Substance: PREGABALIN
     Indication: SKIN BURNING SENSATION
  13. SEROQUEL [Concomitant]
     Active Substance: QUETIAPINE FUMARATE
     Indication: DEPRESSION
     Dosage: 100 MG PILL AT NIGHT
     Route: 048
     Dates: start: 2012
  14. KLONOPIN [Concomitant]
     Active Substance: CLONAZEPAM
     Indication: STRESS
  15. BUSPIRONE [Concomitant]
     Active Substance: BUSPIRONE HYDROCHLORIDE
     Indication: DEPRESSION
     Dosage: TWO 15 MG TWO TIMES A DAY
     Route: 048
     Dates: start: 2012
  16. RITALIN [Concomitant]
     Active Substance: METHYLPHENIDATE HYDROCHLORIDE
     Indication: DISTURBANCE IN ATTENTION
     Dosage: 10 MG PILL TWICE DAILY
     Route: 048
     Dates: start: 201510
  17. BUSPIRONE [Concomitant]
     Active Substance: BUSPIRONE HYDROCHLORIDE
     Indication: STRESS
  18. OMEPRAZOLE. [Concomitant]
     Active Substance: OMEPRAZOLE
     Indication: GASTROOESOPHAGEAL REFLUX DISEASE
     Dosage: 40 MG CAPSULE ONCE DAILY
     Route: 048
  19. HUMATROPE [Concomitant]
     Active Substance: SOMATROPIN
     Indication: ADDISON^S DISEASE
     Dosage: 0.4 OF A 12MG INJECTION
     Dates: start: 201602
  20. TESTOSTERONE. [Concomitant]
     Active Substance: TESTOSTERONE
     Indication: HYPOGONADISM
     Dosage: 0.5 ML ONCE WEEKLY INJECTION
     Dates: start: 201006

REACTIONS (6)
  - Intervertebral disc degeneration [Unknown]
  - Fibromyalgia [Unknown]
  - Weight increased [Unknown]
  - Condition aggravated [Unknown]
  - Spinal fracture [Unknown]
  - Drug dose omission [Unknown]

NARRATIVE: CASE EVENT DATE: 2012
